FAERS Safety Report 8380770-0 (Version None)
Quarter: 2012Q2

REPORT INFORMATION
  Report Type: 
  Country: None (occurrence: None)
  Receive Date: 20120523
  Receipt Date: 20120518
  Transmission Date: 20120825
  Serious: Yes (Death, Life-Threatening)
  Sender: FDA-Public Use
  Company Number: KR-MILLENNIUM PHARMACEUTICALS, INC.-2011-05975

PATIENT

DRUGS (2)
  1. VELCADE [Suspect]
     Indication: MULTIPLE MYELOMA
     Dosage: UNK
     Dates: start: 20111120
  2. DEXTROSE [Concomitant]
     Indication: PROPHYLAXIS
     Dosage: 1000 ML, UNK
     Route: 042
     Dates: start: 20111118, end: 20111120

REACTIONS (3)
  - PLATELET COUNT DECREASED [None]
  - DEATH [None]
  - CEREBRAL HAEMORRHAGE [None]
